FAERS Safety Report 21424588 (Version 1)
Quarter: 2022Q4

REPORT INFORMATION
  Report Type: Spontaneous
  Country: KR (occurrence: KR)
  Receive Date: 20221007
  Receipt Date: 20221007
  Transmission Date: 20230113
  Serious: Yes (Other)
  Sender: FDA-Public Use
  Company Number: KR-GILEAD-2022-0600639

PATIENT
  Age: 65 Year
  Sex: Female

DRUGS (4)
  1. VEKLURY [Suspect]
     Active Substance: REMDESIVIR
     Indication: COVID-19
     Dosage: LOADING DOSE
     Route: 065
     Dates: start: 20220920, end: 20220920
  2. VEKLURY [Suspect]
     Active Substance: REMDESIVIR
     Dosage: UNK, 4 DAYS
     Route: 065
     Dates: start: 20220921, end: 20220925
  3. LEVOFLOXACIN [Concomitant]
     Active Substance: LEVOFLOXACIN
  4. MEROPENEM [Concomitant]
     Active Substance: MEROPENEM

REACTIONS (1)
  - Pneumonia [Not Recovered/Not Resolved]
